FAERS Safety Report 15396312 (Version 3)
Quarter: 2018Q4

REPORT INFORMATION
  Report Type: Spontaneous
  Country: JP (occurrence: JP)
  Receive Date: 20180918
  Receipt Date: 20181023
  Transmission Date: 20190204
  Serious: Yes (Death, Life-Threatening)
  Sender: FDA-Public Use
  Company Number: JP-ROCHE-2186432

PATIENT
  Age: 87 Year
  Sex: Male
  Weight: 56 kg

DRUGS (2)
  1. AVASTIN [Suspect]
     Active Substance: BEVACIZUMAB
     Indication: APPENDIX CANCER
     Route: 041
     Dates: start: 20180904, end: 20180904
  2. XELODA [Suspect]
     Active Substance: CAPECITABINE
     Indication: APPENDIX CANCER
     Dosage: MOST RECENT DOSE ON 07/SEP/2018
     Route: 048
     Dates: start: 20180904, end: 20180907

REACTIONS (4)
  - Off label use [Unknown]
  - Cerebral artery embolism [Not Recovered/Not Resolved]
  - Intentional product use issue [Unknown]
  - Appendix cancer [Fatal]

NARRATIVE: CASE EVENT DATE: 20180908
